FAERS Safety Report 22682836 (Version 2)
Quarter: 2025Q2

REPORT INFORMATION
  Report Type: Spontaneous
  Country: FR (occurrence: FR)
  Receive Date: 20230707
  Receipt Date: 20250625
  Transmission Date: 20250717
  Serious: Yes (Other)
  Sender: TAKEDA
  Company Number: None

PATIENT
  Age: 52 Year
  Sex: Male
  Weight: 135 kg

DRUGS (9)
  1. ANAGRELIDE HYDROCHLORIDE [Suspect]
     Active Substance: ANAGRELIDE HYDROCHLORIDE
     Indication: Essential thrombocythaemia
     Dosage: 1 MILLIGRAM, Q12H
     Dates: start: 20211203, end: 20220111
  2. ANAGRELIDE HYDROCHLORIDE [Suspect]
     Active Substance: ANAGRELIDE HYDROCHLORIDE
     Dosage: 1 MILLIGRAM, Q8HR
     Dates: start: 20220111, end: 20220712
  3. ANAGRELIDE HYDROCHLORIDE [Suspect]
     Active Substance: ANAGRELIDE HYDROCHLORIDE
     Dosage: 1 MILLIGRAM, Q12H
     Dates: start: 20220712, end: 20230222
  4. ANAGRELIDE HYDROCHLORIDE [Suspect]
     Active Substance: ANAGRELIDE HYDROCHLORIDE
     Dosage: 1 MILLIGRAM, Q12H
     Dates: start: 20230222
  5. Previscan [Concomitant]
     Indication: Thrombosis prophylaxis
     Dosage: 30 MILLIGRAM, QD
     Dates: start: 201310
  6. HYDREA [Concomitant]
     Active Substance: HYDROXYUREA
     Indication: Essential thrombocythaemia
     Dosage: 2000 MILLIGRAM, QD
     Dates: start: 20210601, end: 20220111
  7. HYDREA [Concomitant]
     Active Substance: HYDROXYUREA
     Dosage: 1000 MILLIGRAM, QD
     Dates: start: 20220111, end: 20220401
  8. HYDREA [Concomitant]
     Active Substance: HYDROXYUREA
     Dosage: 500 MILLIGRAM, QD
     Dates: start: 20220401, end: 20220415
  9. CANDESARTAN CILEXETIL [Concomitant]
     Active Substance: CANDESARTAN CILEXETIL
     Indication: Hypertension
     Dosage: 24 MILLIGRAM, QD

REACTIONS (2)
  - Rotator cuff syndrome [Recovered/Resolved]
  - Tendonitis [Recovered/Resolved]

NARRATIVE: CASE EVENT DATE: 20220101
